FAERS Safety Report 23020296 (Version 1)
Quarter: 2023Q4

REPORT INFORMATION
  Report Type: Spontaneous
  Country: IT (occurrence: IT)
  Receive Date: 20231003
  Receipt Date: 20231003
  Transmission Date: 20240110
  Serious: Yes (Other)
  Sender: FDA-Public Use
  Company Number: IT-OTSUKA-2023_025430

PATIENT

DRUGS (6)
  1. BREXPIPRAZOLE [Interacting]
     Active Substance: BREXPIPRAZOLE
     Indication: Schizophrenia
     Dosage: 4 MG, QD
     Route: 065
  2. BREXPIPRAZOLE [Interacting]
     Active Substance: BREXPIPRAZOLE
     Dosage: UNK
     Route: 065
  3. CLOZAPINE [Interacting]
     Active Substance: CLOZAPINE
     Indication: Schizophrenia
     Dosage: UNK
     Route: 048
  4. VALPROIC ACID [Concomitant]
     Active Substance: VALPROIC ACID
     Indication: Salivary hypersecretion
     Dosage: UNK
     Route: 065
  5. METFORMIN [Concomitant]
     Active Substance: METFORMIN HYDROCHLORIDE
     Indication: Salivary hypersecretion
     Dosage: UNK
     Route: 065
  6. AMITRIPTYLINE [Concomitant]
     Active Substance: AMITRIPTYLINE
     Indication: Salivary hypersecretion
     Dosage: UNK
     Route: 065

REACTIONS (6)
  - Psychotic symptom [Unknown]
  - Hallucination, auditory [Unknown]
  - Abnormal behaviour [Unknown]
  - Delusion [Unknown]
  - Drug level decreased [Recovering/Resolving]
  - Drug interaction [Unknown]
